FAERS Safety Report 13373818 (Version 1)
Quarter: 2017Q1

REPORT INFORMATION
  Report Type: Spontaneous
  Country: US (occurrence: US)
  Receive Date: 20170327
  Receipt Date: 20170327
  Transmission Date: 20170429
  Serious: Yes (Disabling)
  Sender: FDA-Public Use
  Company Number: None

PATIENT
  Age: 61 Year
  Sex: Female
  Weight: 89.55 kg

DRUGS (12)
  1. LISINOPRIL. [Concomitant]
     Active Substance: LISINOPRIL
  2. EXEDRIN MIGRAINE [Concomitant]
  3. PERSERVISION AREDS2 [Concomitant]
  4. LEXAPRO [Concomitant]
     Active Substance: ESCITALOPRAM OXALATE
  5. EYLEA [Suspect]
     Active Substance: AFLIBERCEPT
     Indication: AGE-RELATED MACULAR DEGENERATION
     Dosage: ?          OTHER ROUTE:INJECTION INTO THE EYE?
     Route: 047
     Dates: start: 20161222, end: 20161222
  6. MAGNESIUM [Concomitant]
     Active Substance: MAGNESIUM
  7. STOOL SOFTENER (DOCUSATE) [Concomitant]
     Active Substance: DOCUSATE
  8. SYNTHROID [Concomitant]
     Active Substance: LEVOTHYROXINE SODIUM
  9. CENTRUM SILVER [Concomitant]
     Active Substance: MINERALS\VITAMINS
  10. CALCIUM WITH VIT D [Concomitant]
  11. TYLENOL [Concomitant]
     Active Substance: ACETAMINOPHEN
  12. MOTRIN [Concomitant]
     Active Substance: IBUPROFEN

REACTIONS (5)
  - Impaired work ability [None]
  - Headache [None]
  - Visual impairment [None]
  - Neuropathy peripheral [None]
  - Eye pain [None]

NARRATIVE: CASE EVENT DATE: 20161222
